FAERS Safety Report 12143248 (Version 1)
Quarter: 2016Q1

REPORT INFORMATION
  Report Type: Spontaneous
  Country: IN (occurrence: IN)
  Receive Date: 20160304
  Receipt Date: 20160304
  Transmission Date: 20160526
  Serious: No
  Sender: FDA-Public Use
  Company Number: IN-LUPIN PHARMACEUTICALS INC.-E2B_00004590

PATIENT
  Sex: Male

DRUGS (2)
  1. R-CIN [Suspect]
     Active Substance: RIFAMPIN
     Indication: LIVER DISORDER
     Route: 048
     Dates: start: 20151128
  2. HEPATINIC [Concomitant]
     Indication: PRODUCT USED FOR UNKNOWN INDICATION
     Route: 065

REACTIONS (1)
  - Chromaturia [Not Recovered/Not Resolved]

NARRATIVE: CASE EVENT DATE: 20151128
